FAERS Safety Report 16144004 (Version 1)
Quarter: 2019Q2

REPORT INFORMATION
  Report Type: Not Available
  Country: US (occurrence: US)
  Receive Date: 20190401
  Receipt Date: 20190401
  Transmission Date: 20190711
  Serious: Yes (Other)
  Sender: FDA-Public Use
  Company Number: US-C B FLEET CO INC-201903-US-000675

PATIENT
  Sex: Male

DRUGS (1)
  1. BC ARTHRITIS [Suspect]
     Active Substance: ASPIRIN\CAFFEINE
     Indication: DRUG DEPENDENCE
     Dosage: UNSPECIFIED AMOUNT TAKEN
     Route: 048

REACTIONS (3)
  - Drug dependence [Not Recovered/Not Resolved]
  - Choking sensation [Not Recovered/Not Resolved]
  - Incorrect product administration duration [None]
